FAERS Safety Report 13046614 (Version 10)
Quarter: 2017Q1

REPORT INFORMATION
  Report Type: Report from Study
  Country: US (occurrence: US)
  Receive Date: 20161220
  Receipt Date: 20170313
  Transmission Date: 20170428
  Serious: Yes (Death, Hospitalization, Other)
  Sender: FDA-Public Use
  Company Number: US-GILEAD-2016-0249410

PATIENT
  Age: 52 Year
  Sex: Female
  Weight: 70.8 kg

DRUGS (18)
  1. AMBRISENTAN [Suspect]
     Active Substance: AMBRISENTAN
     Indication: PULMONARY ARTERIAL HYPERTENSION
     Dosage: 10 MG, QD
     Route: 048
     Dates: start: 20160829
  2. NICOTINE. [Concomitant]
     Active Substance: NICOTINE
  3. COUMADIN [Concomitant]
     Active Substance: WARFARIN SODIUM
     Dosage: 2.5 MG, QD
     Route: 048
  4. CLONAZEPAM. [Concomitant]
     Active Substance: CLONAZEPAM
     Dosage: 1 MG, TID PRN
     Route: 048
     Dates: start: 20160227
  5. FOLIC ACID. [Concomitant]
     Active Substance: FOLIC ACID
     Dosage: 1 MG, QD
     Route: 048
  6. ORENITRAM [Concomitant]
     Active Substance: TREPROSTINIL
     Dosage: 2.5 MG, TID
     Route: 048
     Dates: start: 20170202
  7. ADCIRCA [Concomitant]
     Active Substance: TADALAFIL
  8. AMARYL [Concomitant]
     Active Substance: GLIMEPIRIDE
     Dosage: 2 MG, QD
     Route: 048
  9. FUROSEMIDE. [Concomitant]
     Active Substance: FUROSEMIDE
     Dosage: 80 MG, BID
     Route: 048
  10. HYDROCODONE BITARTRATE AND ACETAMINOPHEN [Concomitant]
     Active Substance: ACETAMINOPHEN\HYDROCODONE BITARTRATE
     Dosage: 10-325 MG, Q4HR PRN
     Route: 048
  11. METOLAZONE. [Concomitant]
     Active Substance: METOLAZONE
     Dosage: 2.5 MG, QD
     Route: 048
  12. SIMVASTATIN. [Concomitant]
     Active Substance: SIMVASTATIN
     Dosage: 10 MG, QD
     Route: 048
  13. AMBRISENTAN [Suspect]
     Active Substance: AMBRISENTAN
     Dosage: 5 MG, QD
     Route: 065
  14. ORENITRAM [Concomitant]
     Active Substance: TREPROSTINIL
     Dosage: 1 MG, TID
     Route: 048
  15. SILDENAFIL CITRATE. [Concomitant]
     Active Substance: SILDENAFIL CITRATE
     Dosage: 60 MG, TID
     Route: 048
  16. RANITIDINE. [Concomitant]
     Active Substance: RANITIDINE
     Dosage: 300 MG, BID
     Route: 048
  17. VIIBRYD [Concomitant]
     Active Substance: VILAZODONE HYDROCHLORIDE
     Dosage: 40 MG, QD
     Route: 048
  18. REVATIO [Concomitant]
     Active Substance: SILDENAFIL CITRATE

REACTIONS (11)
  - Respiratory failure [Fatal]
  - Malaise [Recovering/Resolving]
  - Asthenia [Unknown]
  - Headache [Unknown]
  - Pain in extremity [Unknown]
  - Fatigue [Unknown]
  - Nausea [Unknown]
  - Flushing [Unknown]
  - Dyspnoea [Recovering/Resolving]
  - Hypoxia [Fatal]
  - Drug dose omission [Fatal]

NARRATIVE: CASE EVENT DATE: 20161204
